FAERS Safety Report 6035079-7 (Version None)
Quarter: 2009Q1

REPORT INFORMATION
  Report Type: 
  Country: None (occurrence: None)
  Receive Date: 20090112
  Receipt Date: 20090107
  Transmission Date: 20090719
  Serious: Yes (Other)
  Sender: FDA-Public Use
  Company Number: US-ROXANE LABORATORIES, INC.-2009-RO-00030RO

PATIENT
  Age: 16 Year
  Sex: Male

DRUGS (4)
  1. METHOTREXATE [Suspect]
     Indication: PSORIASIS
  2. ALEFACEPT [Suspect]
     Route: 030
     Dates: start: 20030520, end: 20030604
  3. ULTRAVIOLET B LIGHT [Suspect]
     Indication: PSORIASIS
  4. METHYLPHENIDATE HCL [Suspect]
     Indication: ATTENTION DEFICIT/HYPERACTIVITY DISORDER

REACTIONS (2)
  - CD4 LYMPHOCYTES DECREASED [None]
  - DRUG INEFFECTIVE [None]
